FAERS Safety Report 12883558 (Version 3)
Quarter: 2017Q2

REPORT INFORMATION
  Report Type: Report from Study
  Country: US (occurrence: US)
  Receive Date: 20161025
  Receipt Date: 20170608
  Transmission Date: 20170830
  Serious: Yes (Hospitalization, Other)
  Sender: FDA-Public Use
  Company Number: US-GILEAD-2016-0239779

PATIENT
  Age: 65 Year
  Sex: Female

DRUGS (1)
  1. AMBRISENTAN [Suspect]
     Active Substance: AMBRISENTAN
     Indication: PULMONARY HYPERTENSION
     Dosage: 5 MG, QD
     Route: 065
     Dates: start: 20130722

REACTIONS (5)
  - Fracture delayed union [Unknown]
  - Femur fracture [Recovered/Resolved]
  - Drug dose omission [Recovered/Resolved]
  - Lower limb fracture [Unknown]
  - Limb operation [Not Recovered/Not Resolved]
